FAERS Safety Report 7017666-2 (Version None)
Quarter: 2010Q3

REPORT INFORMATION
  Report Type: 
  Country: None (occurrence: None)
  Receive Date: 20100928
  Receipt Date: 20100714
  Transmission Date: 20110219
  Serious: No
  Sender: FDA-Public Use
  Company Number: US-MYLANLABS-2010S1012740

PATIENT
  Age: 59 Year
  Sex: Female
  Weight: 95.26 kg

DRUGS (6)
  1. TRAZODONE HCL [Suspect]
     Indication: DEPRESSION
     Route: 048
     Dates: start: 20100501, end: 20100713
  2. TRAZODONE HCL [Suspect]
     Indication: ANXIETY
     Route: 048
     Dates: start: 20100501, end: 20100713
  3. TRAZODONE HCL [Suspect]
     Route: 048
     Dates: start: 20100713
  4. TRAZODONE HCL [Suspect]
     Route: 048
     Dates: start: 20100713
  5. PROPRANOLOL [Concomitant]
     Indication: MIGRAINE
     Dates: start: 20050101
  6. ASPIRIN [Concomitant]
     Dates: start: 20060101

REACTIONS (3)
  - ANXIETY [None]
  - DEPRESSION [None]
  - DRUG EFFECT DECREASED [None]
